FAERS Safety Report 25350520 (Version 1)
Quarter: 2025Q2

REPORT INFORMATION
  Report Type: Spontaneous
  Country: US (occurrence: US)
  Receive Date: 20250523
  Receipt Date: 20250523
  Transmission Date: 20250717
  Serious: Yes (Other)
  Sender: Kenvue
  Company Number: US-KENVUE-20250505797

PATIENT
  Age: 65 Year
  Sex: Male

DRUGS (1)
  1. MENS ROGAINE UNSCENTED FORMULA [Suspect]
     Active Substance: MINOXIDIL
     Indication: Alopecia
     Dosage: UNK, TWICE A DAY, 2X A DAY, HALF CAPFUL MORE OR LESS, SOMETIMES ONCE OR TWICE A DAY.
     Route: 065
     Dates: start: 20240201

REACTIONS (4)
  - Syncope [Recovered/Resolved]
  - Inappropriate schedule of product administration [Unknown]
  - Labyrinthitis [Recovering/Resolving]
  - Hypertension [Recovering/Resolving]

NARRATIVE: CASE EVENT DATE: 20240201
